FAERS Safety Report 12553906 (Version 2)
Quarter: 2016Q3

REPORT INFORMATION
  Report Type: Spontaneous
  Country: GB (occurrence: GB)
  Receive Date: 20160713
  Receipt Date: 20160824
  Transmission Date: 20161109
  Serious: Yes (Other)
  Sender: FDA-Public Use
  Company Number: GB-FRESENIUS KABI-FK201604315

PATIENT
  Age: 62 Year
  Sex: Male

DRUGS (7)
  1. DEXAMETHASONE. [Concomitant]
     Active Substance: DEXAMETHASONE
  2. GEMCITABINE [Suspect]
     Active Substance: GEMCITABINE\GEMCITABINE HYDROCHLORIDE
     Indication: PRODUCT USED FOR UNKNOWN INDICATION
     Route: 065
  3. CARBOPLATIN (MANUFACTURER UNKNOWN) [Suspect]
     Active Substance: CARBOPLATIN
     Indication: PRODUCT USED FOR UNKNOWN INDICATION
     Route: 065
  4. NEULASTA [Suspect]
     Active Substance: PEGFILGRASTIM
     Indication: PRODUCT USED FOR UNKNOWN INDICATION
     Route: 058
  5. CEFALEXIN [Concomitant]
     Active Substance: CEPHALEXIN
  6. DOMPERIDONE [Concomitant]
     Active Substance: DOMPERIDONE
  7. ONDANSETRON [Concomitant]
     Active Substance: ONDANSETRON

REACTIONS (22)
  - Haemoglobin decreased [Unknown]
  - Erythema [Unknown]
  - Back pain [Unknown]
  - Myalgia [Recovering/Resolving]
  - Neutrophil count decreased [Unknown]
  - Urinary tract infection [Unknown]
  - Constipation [Unknown]
  - Energy increased [Unknown]
  - Mouth ulceration [Unknown]
  - Gout [Unknown]
  - Infusion site pain [Unknown]
  - Vasospasm [Unknown]
  - Fatigue [Unknown]
  - Underdose [Unknown]
  - Abdominal pain lower [Unknown]
  - Ocular hyperaemia [Unknown]
  - Device infusion issue [Unknown]
  - Eye disorder [Unknown]
  - Visual impairment [Unknown]
  - White blood cell count decreased [Unknown]
  - Oral pain [Not Recovered/Not Resolved]
  - Body temperature increased [Unknown]

NARRATIVE: CASE EVENT DATE: 20160617
